FAERS Safety Report 19969064 (Version 1)
Quarter: 2021Q4

REPORT INFORMATION
  Report Type: Spontaneous
  Country: US (occurrence: US)
  Receive Date: 20211019
  Receipt Date: 20211019
  Transmission Date: 20220303
  Serious: No
  Sender: FDA-Public Use
  Company Number: US-PFIZER INC-202101190536

PATIENT
  Age: 50 Year
  Sex: Female
  Weight: 72.57 kg

DRUGS (2)
  1. CHANTIX [Suspect]
     Active Substance: VARENICLINE TARTRATE
     Indication: Smoking cessation therapy
     Dosage: 0.5 MG, 1X/DAY (DAYS 1-3, EACH MORNING)
     Dates: start: 202106
  2. CHANTIX [Suspect]
     Active Substance: VARENICLINE TARTRATE
     Dosage: 0.5 MG, 2X/DAY (DAYS 4-7, EACH MORNING AND EVENING)
     Dates: start: 202106

REACTIONS (3)
  - Depression [Unknown]
  - Abnormal dreams [Recovering/Resolving]
  - Illness [Unknown]
